FAERS Safety Report 14355115 (Version 2)
Quarter: 2018Q1

REPORT INFORMATION
  Report Type: Spontaneous
  Country: CN (occurrence: CN)
  Receive Date: 20180105
  Receipt Date: 20180115
  Transmission Date: 20180509
  Serious: Yes (Hospitalization)
  Sender: FDA-Public Use
  Company Number: CN-PFIZER INC-2018003790

PATIENT
  Age: 3 Year
  Sex: Male
  Weight: 17 kg

DRUGS (5)
  1. SULPERAZON [Suspect]
     Active Substance: CEFOPERAZONE SODIUM\SULBACTAM SODIUM
     Dosage: 1 G, 4X/DAY
     Route: 041
     Dates: start: 20170929
  2. MEPEM [Suspect]
     Active Substance: MEROPENEM
     Indication: THERAPEUTIC PROCEDURE
     Dosage: 0.75 G, 3X/DAY (CONTINUOUS ADMINISTRATED IN 3 HOURS)
     Route: 041
     Dates: start: 20170925, end: 20171010
  3. SULPERAZON [Suspect]
     Active Substance: CEFOPERAZONE SODIUM\SULBACTAM SODIUM
     Dosage: 1 G, 4X/DAY (ADMINISTRATED MORE THAN 2 HOURS)
     Route: 041
     Dates: start: 20170925
  4. SULPERAZON [Suspect]
     Active Substance: CEFOPERAZONE SODIUM\SULBACTAM SODIUM
     Indication: THERAPEUTIC PROCEDURE
     Dosage: 0.3 G, 3X/DAY
     Route: 041
     Dates: start: 20170908, end: 20170920
  5. TYGACIL [Suspect]
     Active Substance: TIGECYCLINE
     Indication: THERAPEUTIC PROCEDURE
     Dosage: 30 MG, 2X/DAY
     Route: 041
     Dates: start: 20171009, end: 20171026

REACTIONS (3)
  - Fungal infection [Not Recovered/Not Resolved]
  - Candida infection [Not Recovered/Not Resolved]
  - Diarrhoea [Not Recovered/Not Resolved]

NARRATIVE: CASE EVENT DATE: 20171024
